APPROVED DRUG PRODUCT: ATROPINE SULFATE
Active Ingredient: ATROPINE SULFATE
Strength: 8MG/20ML (0.4MG/ML)
Dosage Form/Route: SOLUTION;INTRAVENOUS, INTRAMUSCULAR, SUBCUTANEOUS, INTRAOSSEOUS, ENDOTRACHEAL
Application: A213424 | Product #001 | TE Code: AP
Applicant: ACCORD HEALTHCARE INC
Approved: Mar 19, 2021 | RLD: No | RS: No | Type: RX